FAERS Safety Report 9048795 (Version 2)
Quarter: 2013Q1

REPORT INFORMATION
  Report Type: Spontaneous
  Country: US (occurrence: None)
  Receive Date: 20130114
  Receipt Date: 20130206
  Transmission Date: 20140127
  Serious: Yes (Hospitalization)
  Sender: FDA-Public Use
  Company Number: 2013PROUSA02449

PATIENT
  Age: 66 Year
  Sex: Male
  Weight: 107 kg

DRUGS (10)
  1. PROVENGE (SIPULEUCEL-T) SUSPENSION [Suspect]
     Indication: PROSTATE CANCER METASTATIC
     Route: 042
     Dates: start: 20121108, end: 20121108
  2. NORVASC (AMLODIPINE BESILATE) [Concomitant]
  3. GLYBURIDE (GLIBENCLAMIDE) [Concomitant]
  4. LIPITOR (ATORVASTATIN CALCIUM) [Concomitant]
  5. ACCUPRIL (QUINAPRIL HYDROCHLORIDE) [Concomitant]
  6. METOPROLOL SUCCINATE (METOPROLOL SUCCINATE) [Concomitant]
  7. LANTUS (INSULIN GLARGINE) [Concomitant]
  8. LUPRON DEPOT (LEUPRORELIN ACETATE) [Concomitant]
  9. HYDROCHLOROTHIAZIDE (HYDROCHLOROTHIAZIDE) [Concomitant]
  10. ACETYLSALICYLIC ACID (ACETYLSALICYLIC ACID) [Concomitant]

REACTIONS (8)
  - Ventricular fibrillation [None]
  - Cardiac arrest [None]
  - Pyrexia [None]
  - Pain [None]
  - Myocardial infarction [None]
  - Coronary artery disease [None]
  - Coronary artery stenosis [None]
  - Atrial fibrillation [None]
